FAERS Safety Report 4916137-4 (Version None)
Quarter: 2006Q1

REPORT INFORMATION
  Report Type: 
  Country: None (occurrence: None)
  Receive Date: 20060217
  Receipt Date: 20060206
  Transmission Date: 20060701
  Serious: Yes (Death, Hospitalization)
  Sender: FDA-Public Use
  Company Number: US-MERCK-0602USA04033

PATIENT
  Age: 56 Year
  Sex: Female

DRUGS (6)
  1. VIOXX [Suspect]
     Indication: DIABETIC ULCER
     Route: 048
     Dates: start: 20020101, end: 20040101
  2. ERY-TAB [Concomitant]
     Route: 065
  3. GLYBURIDE [Concomitant]
     Route: 065
  4. ACTOS [Concomitant]
     Route: 065
  5. VICODIN [Concomitant]
     Route: 065
  6. INSULIN [Concomitant]
     Route: 065

REACTIONS (5)
  - CEREBROVASCULAR ACCIDENT [None]
  - CORONARY ARTERY OCCLUSION [None]
  - DEATH [None]
  - HYPERTENSION [None]
  - MYOCARDIAL INFARCTION [None]
